FAERS Safety Report 7449971-X (Version None)
Quarter: 2011Q2

REPORT INFORMATION
  Report Type: 
  Country: None (occurrence: None)
  Receive Date: 20110428
  Receipt Date: 20110428
  Transmission Date: 20111010
  Serious: No
  Sender: FDA-Public Use
  Company Number: None

PATIENT
  Sex: Female

DRUGS (1)
  1. ENBREL [Suspect]
     Indication: RHEUMATOID ARTHRITIS
     Dosage: 50MG Q7D SQ
     Route: 058
     Dates: start: 20110118, end: 20110201

REACTIONS (5)
  - DIZZINESS [None]
  - NIGHTMARE [None]
  - BALANCE DISORDER [None]
  - ANXIETY [None]
  - HEADACHE [None]
